FAERS Safety Report 4678258-3 (Version None)
Quarter: 2005Q2

REPORT INFORMATION
  Report Type: 
  Country: None (occurrence: None)
  Receive Date: 20050601
  Receipt Date: 20041119
  Transmission Date: 20051028
  Serious: Yes (Other)
  Sender: FDA-Public Use
  Company Number: 200414362FR

PATIENT
  Sex: Female

DRUGS (1)
  1. KETEK [Suspect]
     Indication: TONSILLITIS

REACTIONS (2)
  - DRUG HYPERSENSITIVITY [None]
  - PSORIASIS [None]
